FAERS Safety Report 20228439 (Version 1)
Quarter: 2021Q4

REPORT INFORMATION
  Report Type: Spontaneous
  Country: US (occurrence: US)
  Receive Date: 20211224
  Receipt Date: 20211224
  Transmission Date: 20220303
  Serious: Yes (Death, Other)
  Sender: FDA-Public Use
  Company Number: US-009507513-2112USA006202

PATIENT
  Age: 66 Year
  Sex: Female

DRUGS (2)
  1. PRINIVIL [Suspect]
     Active Substance: LISINOPRIL
     Dosage: ROUTE: INGESTION(INGST)
  2. QUETIAPINE [Suspect]
     Active Substance: QUETIAPINE
     Dosage: ROUTE: INGESTION(INGST)

REACTIONS (1)
  - Suspected suicide [Fatal]
